FAERS Safety Report 8575999-2 (Version None)
Quarter: 2012Q3

REPORT INFORMATION
  Report Type: 
  Country: None (occurrence: None)
  Receive Date: 20120725
  Receipt Date: 20120711
  Transmission Date: 20120928
  Serious: Yes (Other)
  Sender: FDA-Public Use
  Company Number: FK201201940

PATIENT
  Age: 13 Month
  Sex: Female
  Weight: 12 kg

DRUGS (1)
  1. DIPHENHYDRAMINE INJECTION (MANUFACTURER UNKNOWN)(DIPHENHYDRAMINE HYDRO [Suspect]
     Indication: ACCIDENTAL OVERDOSE
     Dosage: 25 MG, ORAL
     Route: 048

REACTIONS (10)
  - ELECTROCARDIOGRAM QT PROLONGED [None]
  - FLUSHING [None]
  - TACHYCARDIA [None]
  - NYSTAGMUS [None]
  - ACCIDENTAL OVERDOSE [None]
  - MENTAL STATUS CHANGES [None]
  - GRAND MAL CONVULSION [None]
  - AGITATION [None]
  - LETHARGY [None]
  - ELECTROCARDIOGRAM ABNORMAL [None]
